FAERS Safety Report 5341724-1 (Version None)
Quarter: 2007Q2

REPORT INFORMATION
  Report Type: 
  Country: None (occurrence: None)
  Receive Date: 20070530
  Receipt Date: 20070517
  Transmission Date: 20071010
  Serious: Yes (Hospitalization)
  Sender: FDA-Public Use
  Company Number: 070521-0000528

PATIENT
  Age: 28 Month
  Sex: Female

DRUGS (5)
  1. DACTINOMYCIN [Suspect]
     Indication: NEPHROBLASTOMA
     Dosage: 330 UG; X1; IV
     Route: 042
     Dates: start: 20070112, end: 20070112
  2. DACTINOMYCIN [Suspect]
     Indication: NEPHROBLASTOMA
     Dosage: 330 UG; X1; IV
     Route: 042
     Dates: start: 20070126, end: 20070126
  3. DACTINOMYCIN [Suspect]
     Indication: NEPHROBLASTOMA
     Dosage: 330 UG; X1; IV
     Route: 042
     Dates: start: 20070223, end: 20070223
  4. DACTINOMYCIN [Suspect]
     Indication: NEPHROBLASTOMA
     Dosage: 330 UG; X1; IV
     Route: 042
     Dates: start: 20070411, end: 20070411
  5. VINCRISTINE [Suspect]
     Indication: NEPHROBLASTOMA
     Dosage: 0.5 MG; QW; IV
     Route: 042
     Dates: start: 20070112, end: 20070411

REACTIONS (1)
  - PELIOSIS HEPATIS [None]
